FAERS Safety Report 9503154 (Version 1)
Quarter: 2013Q1

REPORT INFORMATION
  Report Type: Spontaneous
  Country: US (occurrence: None)
  Receive Date: 20130107
  Receipt Date: 20130107
  Transmission Date: 20140127
  Serious: No
  Sender: FDA-Public Use
  Company Number: PHEH2012US019846

PATIENT
  Age: 52 Year
  Sex: Female

DRUGS (7)
  1. GILENYA (FINGOLIMOD) CAPSULE, 0.5MG [Suspect]
     Indication: MULTIPLE SCLEROSIS
     Route: 048
     Dates: start: 20110317, end: 20110714
  2. WELLBUTRIN (BUPROPION HYDROCHLORIDE) [Concomitant]
  3. ASA (ACETYLSALICYLIC ACID) [Concomitant]
  4. SYNTHROID (LEVOTHYROXINE SODIUM) [Concomitant]
  5. FLONASE (FLUTICSONE PROPIONATE) [Concomitant]
  6. ATENOLOL (ATENOLOL) [Concomitant]
  7. KARISA [Concomitant]

REACTIONS (1)
  - Weight increased [None]
